FAERS Safety Report 8985573 (Version 1)
Quarter: 2012Q4

REPORT INFORMATION
  Report Type: 
  Country: FR (occurrence: FR)
  Receive Date: 20121226
  Receipt Date: 20121226
  Transmission Date: 20130627
  Serious: Yes (Other)
  Sender: FDA-Public Use
  Company Number: FR-ASTRAZENECA-2012SE94584

PATIENT
  Age: 28 Year
  Sex: Female

DRUGS (8)
  1. LIDOCAINE [Suspect]
     Indication: ANAESTHESIA
     Route: 042
     Dates: start: 20080416, end: 20080416
  2. EMLA [Suspect]
     Indication: ANAESTHESIA
     Route: 062
     Dates: start: 20080416, end: 20080416
  3. SUPRANE [Suspect]
     Route: 045
     Dates: start: 20080416, end: 20080416
  4. NIMBEX [Suspect]
     Indication: ANAESTHESIA
     Route: 042
     Dates: start: 20080416, end: 20080416
  5. ATARAX [Suspect]
     Indication: PREMEDICATION
     Route: 048
     Dates: start: 20080416, end: 20080416
  6. ALPRAZOLAM [Suspect]
     Indication: PREMEDICATION
     Route: 048
     Dates: start: 20080415, end: 20080415
  7. SUFENTANIL [Concomitant]
     Indication: ANAESTHESIA
     Route: 042
  8. DIPRIVAN [Concomitant]
     Indication: ANAESTHESIA
     Route: 042
     Dates: start: 20120416, end: 20120416

REACTIONS (2)
  - Angioedema [Recovered/Resolved]
  - Drug hypersensitivity [Recovered/Resolved]
